FAERS Safety Report 6966329-8 (Version None)
Quarter: 2010Q3

REPORT INFORMATION
  Report Type: 
  Country: None (occurrence: None)
  Receive Date: 20100903
  Receipt Date: 20100827
  Transmission Date: 20110219
  Serious: Yes (Other)
  Sender: FDA-Public Use
  Company Number: US-ROCHE-571394

PATIENT
  Age: 69 Year
  Sex: Female

DRUGS (2)
  1. BONIVA [Suspect]
     Indication: OSTEOPENIA
     Route: 065
  2. BONIVA [Suspect]
     Route: 065
     Dates: end: 20080601

REACTIONS (2)
  - JAW DISORDER [None]
  - PAIN IN JAW [None]
